FAERS Safety Report 25912928 (Version 1)
Quarter: 2025Q4

REPORT INFORMATION
  Report Type: Spontaneous
  Country: AU (occurrence: None)
  Receive Date: 20251013
  Receipt Date: 20251013
  Transmission Date: 20260117
  Serious: Yes (Hospitalization)
  Sender: ORGANON
  Company Number: None

PATIENT
  Age: 34 Year
  Sex: Male

DRUGS (1)
  1. FINASTERIDE [Suspect]
     Active Substance: FINASTERIDE
     Indication: Alopecia
     Dosage: UNK
     Dates: start: 20240801, end: 20250322

REACTIONS (13)
  - Head discomfort [Recovering/Resolving]
  - Headache [Recovered/Resolved]
  - Muscle twitching [Recovering/Resolving]
  - Myoclonus [Recovering/Resolving]
  - Restless legs syndrome [Recovering/Resolving]
  - Tremor [Recovered/Resolved]
  - Alopecia areata [Recovered/Resolved]
  - Brain fog [Recovering/Resolving]
  - Dizziness [Recovered/Resolved]
  - Emotional distress [Unknown]
  - Lymphadenopathy [Recovered/Resolved]
  - Malaise [Recovered/Resolved]
  - Occipital neuralgia [Recovered/Resolved]

NARRATIVE: CASE EVENT DATE: 20240811
